FAERS Safety Report 8203955-2 (Version None)
Quarter: 2012Q1

REPORT INFORMATION
  Report Type: 
  Country: None (occurrence: None)
  Receive Date: 20120227
  Receipt Date: 20111202
  Transmission Date: 20120608
  Serious: No
  Sender: FDA-Public Use
  Company Number: 340743

PATIENT
  Age: 82 Year
  Sex: Male

DRUGS (1)
  1. VICTOZA [Suspect]
     Indication: TYPE 2 DIABETES MELLITUS
     Dosage: SUBCUTANEOUS
     Route: 058

REACTIONS (5)
  - PARAESTHESIA [None]
  - CONSTIPATION [None]
  - MYALGIA [None]
  - ASTHENIA [None]
  - DIARRHOEA [None]
